FAERS Safety Report 8467040-7 (Version None)
Quarter: 2012Q2

REPORT INFORMATION
  Report Type: 
  Country: None (occurrence: None)
  Receive Date: 20120626
  Receipt Date: 20120613
  Transmission Date: 20120825
  Serious: No
  Sender: FDA-Public Use
  Company Number: US-ASTRAZENECA-2012SE39858

PATIENT
  Age: 67 Year
  Sex: Female
  Weight: 55.3 kg

DRUGS (3)
  1. ATENOLOL [Suspect]
     Indication: GLAUCOMA
     Dosage: QD
     Route: 048
  2. SYNTHROID [Concomitant]
     Indication: THYROID DISORDER
  3. ARIMIDEX [Suspect]
     Indication: BREAST CANCER
     Route: 048
     Dates: start: 20111101

REACTIONS (2)
  - BLISTER [None]
  - RASH PRURITIC [None]
